FAERS Safety Report 9860797 (Version 1)
Quarter: 2014Q1

REPORT INFORMATION
  Report Type: Spontaneous
  Country: US (occurrence: US)
  Receive Date: 20140202
  Receipt Date: 20140202
  Transmission Date: 20141002
  Serious: No
  Sender: FDA-Public Use
  Company Number: US-ALLERGAN-1301529US

PATIENT
  Sex: Female

DRUGS (7)
  1. BOTOX COSMETIC [Suspect]
     Indication: SKIN WRINKLING
     Dosage: 12 UNITS, SINGLE
     Route: 030
     Dates: start: 20130121, end: 20130121
  2. BOTOX COSMETIC [Suspect]
     Indication: SKIN WRINKLING
     Dosage: 38 UNITS, SINGLE
     Route: 030
     Dates: start: 20121107, end: 20121107
  3. BOTOX COSMETIC [Suspect]
     Indication: SKIN WRINKLING
     Dosage: 4 UNITS, SINGLE
     Route: 030
     Dates: start: 20120313, end: 20120313
  4. BOTOX COSMETIC [Suspect]
     Indication: SKIN WRINKLING
     Dosage: 20 UNITS, SINGLE
     Route: 030
     Dates: start: 20120309, end: 20120309
  5. BOTOX COSMETIC [Suspect]
     Indication: SKIN WRINKLING
  6. BOTOX COSMETIC [Suspect]
     Indication: SKIN WRINKLING
  7. HERPES MEDICATION NOS [Concomitant]
     Indication: HERPES VIRUS INFECTION
     Dosage: UNK UNK, PRN
     Route: 048

REACTIONS (6)
  - Musculoskeletal stiffness [Unknown]
  - Dyspnoea [Unknown]
  - Laryngitis [Unknown]
  - Muscular weakness [Unknown]
  - Diplopia [Unknown]
  - Speech disorder [Unknown]
